FAERS Safety Report 10072508 (Version 3)
Quarter: 2015Q1

REPORT INFORMATION
  Report Type: Spontaneous
  Country: US (occurrence: US)
  Receive Date: 20140411
  Receipt Date: 20150127
  Transmission Date: 20150720
  Serious: Yes (Death)
  Sender: FDA-Public Use
  Company Number: US-BAYER-2014-044063

PATIENT
  Age: 64 Year
  Sex: Female

DRUGS (1)
  1. STIVARGA [Suspect]
     Active Substance: REGORAFENIB
     Indication: COLON CANCER
     Dosage: 160 MG, QD, DAILY X 21 DAYS, OFF FOR 7 DAYS
     Route: 048
     Dates: start: 20130422, end: 20130624

REACTIONS (3)
  - Nausea [None]
  - Vomiting [None]
  - Colon cancer stage IV [Fatal]

NARRATIVE: CASE EVENT DATE: 20130613
